FAERS Safety Report 24629206 (Version 1)
Quarter: 2024Q4

REPORT INFORMATION
  Report Type: Spontaneous
  Country: US (occurrence: US)
  Receive Date: 20241118
  Receipt Date: 20241118
  Transmission Date: 20250115
  Serious: Yes (Congenital Anomaly)
  Sender: BOEHRINGER INGELHEIM
  Company Number: US-Boehringer Ingelheim GmbH, Germany-2001-BP-02022

PATIENT
  Age: 2 Month
  Sex: Male
  Weight: 2.79 kg

DRUGS (4)
  1. NEVIRAPINE [Suspect]
     Active Substance: NEVIRAPINE
     Indication: Acquired immunodeficiency syndrome
     Route: 015
     Dates: start: 19980215
  2. LAMIVUDINE+ZIDOVUDINE  (COMBIVIR, CBV) [Concomitant]
     Indication: Drug therapy
     Route: 015
     Dates: start: 19980215, end: 19981130
  3. RETROVIR [Concomitant]
     Active Substance: ZIDOVUDINE
     Indication: Drug therapy
     Dosage: 2 MG/KG/HR
     Route: 042
     Dates: start: 19981130, end: 19981130
  4. RETROVIR [Concomitant]
     Active Substance: ZIDOVUDINE
     Dosage: 1 MG/KG/HR
     Route: 042
     Dates: start: 19981130, end: 19981130

REACTIONS (1)
  - Congenital torticollis [Recovered/Resolved]

NARRATIVE: CASE EVENT DATE: 19990210
